FAERS Safety Report 7755980-3 (Version None)
Quarter: 2011Q3

REPORT INFORMATION
  Report Type: 
  Country: None (occurrence: None)
  Receive Date: 20110916
  Receipt Date: 20100611
  Transmission Date: 20111222
  Serious: No
  Sender: FDA-Public Use
  Company Number: US-BAYER-201026579NA

PATIENT
  Sex: Female

DRUGS (1)
  1. MIRENA [Suspect]
     Dosage: 20 MCG/DAY

REACTIONS (9)
  - SINUSITIS [None]
  - PAIN IN EXTREMITY [None]
  - FATIGUE [None]
  - HEADACHE [None]
  - DIZZINESS [None]
  - NAUSEA [None]
  - GENITAL HAEMORRHAGE [None]
  - BACK PAIN [None]
  - ABDOMINAL PAIN [None]
